FAERS Safety Report 21401413 (Version 5)
Quarter: 2023Q1

REPORT INFORMATION
  Report Type: Spontaneous
  Country: US (occurrence: None)
  Receive Date: 20221003
  Receipt Date: 20230210
  Transmission Date: 20230418
  Serious: Yes (Other)
  Sender: FDA-Public Use
  Company Number: US-ROCHE-3114615

PATIENT
  Sex: Male

DRUGS (1)
  1. HEMLIBRA [Suspect]
     Active Substance: EMICIZUMAB-KXWH
     Indication: Factor VIII deficiency
     Dosage: STRENGTH:150 MG/ML
     Route: 058
     Dates: start: 202204

REACTIONS (5)
  - Muscle haemorrhage [Unknown]
  - Haemorrhage [Recovered/Resolved]
  - Musculoskeletal discomfort [Unknown]
  - Joint swelling [Unknown]
  - Haemorrhage [Unknown]

NARRATIVE: CASE EVENT DATE: 20220907
